FAERS Safety Report 9559866 (Version 3)
Quarter: 2014Q2

REPORT INFORMATION
  Report Type: Report from Study
  Country: GB (occurrence: GB)
  Receive Date: 20130927
  Receipt Date: 20140612
  Transmission Date: 20141212
  Serious: Yes (Death, Hospitalization)
  Sender: FDA-Public Use
  Company Number: GB-ROCHE-1281720

PATIENT
  Age: 87 Year
  Sex: Female

DRUGS (14)
  1. RANIBIZUMAB [Suspect]
     Indication: AGE-RELATED MACULAR DEGENERATION
     Route: 050
     Dates: start: 20120928
  2. RAMIPRIL [Concomitant]
  3. ISOSORBIDE MONONITRATE [Concomitant]
     Route: 065
  4. FUROSEMIDE [Concomitant]
  5. SIMVASTATIN [Concomitant]
  6. WARFARIN [Concomitant]
  7. VENTOLIN [Concomitant]
     Route: 065
  8. IPRATROPIUM BROMIDE [Concomitant]
  9. FERROUS SULPHATE [Concomitant]
  10. AMLODIPINE [Concomitant]
  11. DOXAZOSIN [Concomitant]
  12. DIGOXIN [Concomitant]
  13. AMITRIPTYLINE [Concomitant]
     Route: 065
  14. OMEPRAZOLE [Concomitant]

REACTIONS (12)
  - Renal failure [Fatal]
  - Myocardial ischaemia [Fatal]
  - Multi-organ failure [Fatal]
  - Sepsis [Fatal]
  - Atrial fibrillation [Fatal]
  - Hypoglycaemia [Fatal]
  - Chest pain [Unknown]
  - General physical health deterioration [Unknown]
  - Fall [Unknown]
  - Lower respiratory tract infection [Unknown]
  - Mobility decreased [Unknown]
  - Urinary tract infection [Unknown]
